FAERS Safety Report 19542181 (Version 3)
Quarter: 2021Q3

REPORT INFORMATION
  Report Type: Spontaneous
  Country: US (occurrence: US)
  Receive Date: 20210713
  Receipt Date: 20210922
  Transmission Date: 20211014
  Serious: No
  Sender: FDA-Public Use
  Company Number: US-BAUSCH-BL-2021-020416

PATIENT
  Sex: Female

DRUGS (9)
  1. OLANZAPINE. [Concomitant]
     Active Substance: OLANZAPINE
     Indication: PRODUCT USED FOR UNKNOWN INDICATION
  2. SYPRINE [Suspect]
     Active Substance: TRIENTINE HYDROCHLORIDE
     Indication: CHELATION THERAPY
     Route: 065
  3. FLUNIL [Concomitant]
     Indication: PRODUCT USED FOR UNKNOWN INDICATION
  4. ZINC. [Concomitant]
     Active Substance: ZINC
     Indication: PRODUCT USED FOR UNKNOWN INDICATION
  5. TRIENTINE HYDROCHLORIDE. [Suspect]
     Active Substance: TRIENTINE HYDROCHLORIDE
     Indication: CHELATION THERAPY
     Dosage: SINCE LAST 9 YEARS
     Route: 065
     Dates: start: 2012
  6. CLONAZEPAM. [Suspect]
     Active Substance: CLONAZEPAM
     Indication: PRODUCT USED FOR UNKNOWN INDICATION
     Route: 065
     Dates: start: 2021, end: 2021
  7. CLONAZEPAM. [Suspect]
     Active Substance: CLONAZEPAM
     Dosage: DOSE REDUCED
     Route: 065
     Dates: start: 2021
  8. SERENACE [Concomitant]
     Active Substance: HALOPERIDOL
     Indication: PRODUCT USED FOR UNKNOWN INDICATION
  9. TRIENTINE HYDROCHLORIDE. [Suspect]
     Active Substance: TRIENTINE HYDROCHLORIDE
     Dosage: 10 DAY OF RESTARTING OF NEW BATCH (17/JUN/2021)
     Route: 065
     Dates: start: 2021

REACTIONS (13)
  - Dyskinesia [Not Recovered/Not Resolved]
  - Aphasia [Unknown]
  - Drug ineffective [Unknown]
  - Psychiatric symptom [Not Recovered/Not Resolved]
  - Glossodynia [Unknown]
  - Feeding disorder [Unknown]
  - Aggression [Not Recovered/Not Resolved]
  - Depression [Not Recovered/Not Resolved]
  - Product quality issue [Unknown]
  - Dysphagia [Unknown]
  - Tremor [Not Recovered/Not Resolved]
  - Irritability [Not Recovered/Not Resolved]
  - Anger [Not Recovered/Not Resolved]

NARRATIVE: CASE EVENT DATE: 2021
